FAERS Safety Report 13853939 (Version 7)
Quarter: 2020Q1

REPORT INFORMATION
  Report Type: Report from Study
  Country: CA (occurrence: CA)
  Receive Date: 20170810
  Receipt Date: 20200319
  Transmission Date: 20200409
  Serious: Yes (Hospitalization, Other)
  Sender: FDA-Public Use
  Company Number: PHHY2017CA101874

PATIENT
  Age: 53 Year
  Sex: Male

DRUGS (3)
  1. OCTREOTIDE. [Concomitant]
     Active Substance: OCTREOTIDE
     Indication: CARCINOID TUMOUR
     Dosage: 100 UG, TID (2-3 WEEKS)
     Route: 058
  2. SANDOSTATIN LAR DEPOT [Suspect]
     Active Substance: OCTREOTIDE ACETATE
     Indication: CARCINOID TUMOUR
     Dosage: 30 MG, QMO
     Route: 030
     Dates: start: 20170627
  3. MICARDIS [Concomitant]
     Active Substance: TELMISARTAN
     Indication: BLOOD CHOLESTEROL INCREASED
     Dosage: UNK
     Route: 048

REACTIONS (8)
  - Blood pressure increased [Unknown]
  - Retinal detachment [Unknown]
  - Hernia [Unknown]
  - Lymphatic disorder [Unknown]
  - Post procedural infection [Recovering/Resolving]
  - Body temperature decreased [Unknown]
  - Infection [Unknown]
  - Hypertension [Unknown]

NARRATIVE: CASE EVENT DATE: 20170717
